FAERS Safety Report 16272318 (Version 1)
Quarter: 2019Q2

REPORT INFORMATION
  Report Type: Spontaneous
  Country: US (occurrence: US)
  Receive Date: 20190506
  Receipt Date: 20190506
  Transmission Date: 20190711
  Serious: No
  Sender: FDA-Public Use
  Company Number: US-DRREDDYS-USA/USA/19/0109784

PATIENT
  Age: 55 Year
  Sex: Female
  Weight: 104.54 kg

DRUGS (2)
  1. HABITROL [Suspect]
     Active Substance: NICOTINE
     Indication: SMOKING CESSATION THERAPY
     Route: 062
     Dates: start: 201904
  2. HABITROL [Suspect]
     Active Substance: NICOTINE
     Route: 062
     Dates: start: 201903

REACTIONS (3)
  - Fatigue [Unknown]
  - Malaise [Recovered/Resolved]
  - Nasopharyngitis [Recovered/Resolved]

NARRATIVE: CASE EVENT DATE: 201904
